FAERS Safety Report 9431492 (Version 1)
Quarter: 2013Q3

REPORT INFORMATION
  Report Type: Spontaneous
  Country: US (occurrence: US)
  Receive Date: 20130730
  Receipt Date: 20130730
  Transmission Date: 20140515
  Serious: No
  Sender: FDA-Public Use
  Company Number: US-TEVA-420051USA

PATIENT
  Age: 36 Year
  Sex: Female
  Weight: 71.28 kg

DRUGS (3)
  1. PARAGARD 380A [Suspect]
     Indication: CONTRACEPTION
     Dates: start: 20130523
  2. DIFLUCAN [Concomitant]
  3. LABETALOL [Concomitant]

REACTIONS (1)
  - Medical device complication [Not Recovered/Not Resolved]
